FAERS Safety Report 18853344 (Version 1)
Quarter: 2021Q1

REPORT INFORMATION
  Report Type: Spontaneous
  Country: GB (occurrence: GB)
  Receive Date: 20210205
  Receipt Date: 20210205
  Transmission Date: 20210420
  Serious: Yes (Hospitalization, Other)
  Sender: FDA-Public Use
  Company Number: GB-ASTRAZENECA-2020SE21824

PATIENT
  Sex: Female

DRUGS (2)
  1. FASENRA [Suspect]
     Active Substance: BENRALIZUMAB
     Indication: ASTHMA
     Dosage: 30.0MG UNKNOWN
     Route: 058
     Dates: start: 20191122, end: 20191122
  2. MONTELUKAST [Concomitant]
     Active Substance: MONTELUKAST SODIUM

REACTIONS (3)
  - Pyrexia [Unknown]
  - Hypersensitivity [Recovered/Resolved]
  - Dyspnoea [Unknown]
